FAERS Safety Report 12717837 (Version 1)
Quarter: 2016Q3

REPORT INFORMATION
  Report Type: Spontaneous
  Country: US (occurrence: US)
  Receive Date: 20160906
  Receipt Date: 20160906
  Transmission Date: 20161109
  Serious: No
  Sender: FDA-Public Use
  Company Number: US-AMNEAL PHARMACEUTICALS-2016AMN00400

PATIENT
  Sex: Female
  Weight: 73.92 kg

DRUGS (6)
  1. FLECAINIDE ACETATE. [Suspect]
     Active Substance: FLECAINIDE ACETATE
     Indication: ATRIAL FIBRILLATION
  2. LEVOTHYROXINE SODIUM. [Concomitant]
     Active Substance: LEVOTHYROXINE SODIUM
     Dosage: ONE TABLET, ONE TIME A DAY
  3. TIKOSYN CAPSULES [Concomitant]
     Dosage: ONE CAPSULE, TWO TIMES A DAY
  4. WARFARIN SODIUM. [Concomitant]
     Active Substance: WARFARIN SODIUM
     Dosage: ONETABLET AS DIRECTED
  5. METOPROLOL SUCCINATE ER 50MG [Concomitant]
     Dosage: ONE TABLET TWO TIMES A DAY)
  6. VITAMIN D3 2,000 UNITS [Concomitant]
     Dosage: ONE CAPSULE, AS DIRECTED DAILY WITH FOOD

REACTIONS (2)
  - Drug ineffective [Not Recovered/Not Resolved]
  - Condition aggravated [Not Recovered/Not Resolved]
